FAERS Safety Report 8142948-0 (Version None)
Quarter: 2012Q1

REPORT INFORMATION
  Report Type: 
  Country: None (occurrence: None)
  Receive Date: 20120217
  Receipt Date: 20120206
  Transmission Date: 20120608
  Serious: No
  Sender: FDA-Public Use
  Company Number: US-BIOGENIDEC-2012BI004797

PATIENT
  Age: 53 Year
  Sex: Female

DRUGS (2)
  1. AVONEX [Concomitant]
     Indication: MULTIPLE SCLEROSIS
     Route: 030
  2. TYSABRI [Suspect]
     Indication: MULTIPLE SCLEROSIS
     Route: 042
     Dates: start: 20110412

REACTIONS (6)
  - HYPOAESTHESIA [None]
  - NEUROGENIC BLADDER [None]
  - DIARRHOEA [None]
  - WEIGHT INCREASED [None]
  - URINARY TRACT INFECTION [None]
  - STRESS [None]
